FAERS Safety Report 7586810-0 (Version None)
Quarter: 2011Q3

REPORT INFORMATION
  Report Type: 
  Country: None (occurrence: None)
  Receive Date: 20110701
  Receipt Date: 20110620
  Transmission Date: 20111222
  Serious: Yes (Hospitalization)
  Sender: FDA-Public Use
  Company Number: PHHY2011GB54387

PATIENT
  Age: 58 Year
  Sex: Female

DRUGS (1)
  1. METHOTREXATE [Suspect]
     Route: 037

REACTIONS (6)
  - CEREBRAL DISORDER [None]
  - PYREXIA [None]
  - APHASIA [None]
  - LEUKOENCEPHALOPATHY [None]
  - STATUS EPILEPTICUS [None]
  - CONFUSIONAL STATE [None]
